FAERS Safety Report 25026085 (Version 1)
Quarter: 2025Q1

REPORT INFORMATION
  Report Type: Report from Study
  Country: ES (occurrence: ES)
  Receive Date: 20250301
  Receipt Date: 20250301
  Transmission Date: 20250409
  Serious: Yes (Hospitalization)
  Sender: ABBVIE
  Company Number: ES-JNJFOC-20240145186

PATIENT
  Age: 76 Year
  Sex: Female

DRUGS (1)
  1. IMBRUVICA [Suspect]
     Active Substance: IBRUTINIB
     Indication: Chronic lymphocytic leukaemia
     Dosage: LAST ADMINISTRATION DATE: 26 FEB 2024
     Route: 048
     Dates: start: 20231002

REACTIONS (1)
  - Escherichia urinary tract infection [Recovered/Resolved]

NARRATIVE: CASE EVENT DATE: 20231127
